FAERS Safety Report 8768160 (Version 2)
Quarter: 2012Q4

REPORT INFORMATION
  Report Type: 
  Country: US (occurrence: US)
  Receive Date: 20120904
  Receipt Date: 20121025
  Transmission Date: 20130627
  Serious: Yes (Disabling, Other)
  Sender: FDA-Public Use
  Company Number: US-009507513-0707USA02692

PATIENT

DRUGS (9)
  1. FOSAMAX [Suspect]
     Indication: OSTEOPOROSIS
     Dosage: 70 mg, UNK
     Route: 048
     Dates: start: 20040301, end: 20060606
  2. FOSAMAX [Suspect]
     Indication: OSTEOPENIA
  3. HYDROCODONE BITARTRATE [Concomitant]
     Indication: PAIN
     Dates: start: 2000
  4. PROZAC [Concomitant]
     Indication: DEPRESSION
     Dates: start: 2003
  5. EFFEXOR [Concomitant]
     Indication: DEPRESSION
     Dates: start: 2003
  6. RESLIN TABLETS 25 [Concomitant]
     Indication: SLEEP DISORDER
     Dates: start: 2001
  7. PRINIVIL [Concomitant]
     Indication: HYPERTENSION
     Dates: start: 1990
  8. ZOMETA [Suspect]
  9. SYNTHROID [Concomitant]
     Indication: HYPOTHYROIDISM
     Dosage: 0.1 mg, qd

REACTIONS (31)
  - Radius fracture [Unknown]
  - Depression [Not Recovered/Not Resolved]
  - Osteonecrosis [Unknown]
  - Osteonecrosis [Unknown]
  - Osteomyelitis [Recovering/Resolving]
  - Osteonecrosis of jaw [Not Recovered/Not Resolved]
  - Lumbar radiculopathy [Unknown]
  - Spondylolisthesis [Unknown]
  - Rotator cuff syndrome [Unknown]
  - Fall [Unknown]
  - Conjunctivitis [Unknown]
  - Cellulitis [Unknown]
  - Upper respiratory tract infection [Unknown]
  - Otitis media [Unknown]
  - Insomnia related to another mental condition [Unknown]
  - Pain [Unknown]
  - Treatment noncompliance [Unknown]
  - Dysuria [Unknown]
  - Groin pain [Unknown]
  - Fall [Unknown]
  - Fistula [Unknown]
  - Major depression [Unknown]
  - Vitamin D decreased [Unknown]
  - Bronchitis [Unknown]
  - Asthma [Unknown]
  - Asthma [Unknown]
  - Abdominal pain upper [Unknown]
  - Headache [Unknown]
  - Back pain [Unknown]
  - Myalgia [Unknown]
  - Blood calcium decreased [Unknown]
